FAERS Safety Report 4674091-7 (Version None)
Quarter: 2005Q2

REPORT INFORMATION
  Report Type: 
  Country: None (occurrence: None)
  Receive Date: 20050524
  Receipt Date: 20050524
  Transmission Date: 20051028
  Serious: Yes (Life-Threatening)
  Sender: FDA-Public Use
  Company Number: None

PATIENT
  Age: 58 Year
  Sex: Female
  Weight: 101.1521 kg

DRUGS (3)
  1. ENBREL  50 MG  SQ WEEKLY [Suspect]
     Indication: RHEUMATOID ARTHRITIS
     Dates: start: 19991101, end: 20050501
  2. . [Concomitant]
  3. . [Concomitant]

REACTIONS (2)
  - DISEASE RECURRENCE [None]
  - NEUTROPENIA [None]
